FAERS Safety Report 14243775 (Version 2)
Quarter: 2018Q1

REPORT INFORMATION
  Report Type: Report from Study
  Country: US (occurrence: US)
  Receive Date: 20171201
  Receipt Date: 20180118
  Transmission Date: 20180508
  Serious: No
  Sender: FDA-Public Use
  Company Number: PHEH2017US038743

PATIENT
  Age: 67 Year

DRUGS (1)
  1. ENTRESTO [Suspect]
     Active Substance: SACUBITRIL\VALSARTAN
     Indication: PRODUCT USED FOR UNKNOWN INDICATION
     Dosage: 24 MG SACUBITRIL, VALSARTAN, UNK
     Route: 065

REACTIONS (2)
  - Drug intolerance [Unknown]
  - Chest pain [Unknown]

NARRATIVE: CASE EVENT DATE: 20180111
